FAERS Safety Report 4915823-X (Version None)
Quarter: 2006Q1

REPORT INFORMATION
  Report Type: 
  Country: None (occurrence: None)
  Receive Date: 20060217
  Receipt Date: 20060206
  Transmission Date: 20060701
  Serious: Yes (Hospitalization)
  Sender: FDA-Public Use
  Company Number: JP-ROCHE-435055

PATIENT
  Age: 26 Year
  Sex: Female

DRUGS (3)
  1. TAMIFLU [Suspect]
     Indication: INFLUENZA
     Route: 048
     Dates: start: 20041114, end: 20041118
  2. NAUZELIN [Concomitant]
  3. ACETAMINOPHEN [Concomitant]

REACTIONS (1)
  - ENCEPHALITIS [None]
